FAERS Safety Report 9979525 (Version 2)
Quarter: 2014Q1

REPORT INFORMATION
  Report Type: Report from Study
  Country: US (occurrence: US)
  Receive Date: 20140306
  Receipt Date: 20140306
  Transmission Date: 20141002
  Serious: No
  Sender: FDA-Public Use
  Company Number: US-ABBVIE-13P-163-1163015-00

PATIENT
  Age: 52 Year
  Sex: Female

DRUGS (7)
  1. HUMIRA [Suspect]
     Indication: PSORIATIC ARTHROPATHY
     Dates: start: 20130908
  2. LISINOPRIL [Concomitant]
     Indication: HYPERTENSION
     Dosage: 20MG DAILY
  3. CHLORTHALIDONE [Concomitant]
     Indication: HYPERTENSION
     Dosage: 50MG DAILY
  4. SIMVASTATIN [Concomitant]
     Indication: BLOOD CHOLESTEROL INCREASED
     Dosage: AT BEDTIME
  5. ASA [Concomitant]
     Indication: BLOOD CHOLESTEROL INCREASED
  6. MULTIVITAMIN [Concomitant]
     Indication: SUPPLEMENTATION THERAPY
  7. FISH OIL [Concomitant]
     Indication: SUPPLEMENTATION THERAPY

REACTIONS (6)
  - Blood glucose increased [Not Recovered/Not Resolved]
  - Nausea [Not Recovered/Not Resolved]
  - Tremor [Not Recovered/Not Resolved]
  - Vomiting [Not Recovered/Not Resolved]
  - Pollakiuria [Unknown]
  - Blood urine [Unknown]
